FAERS Safety Report 12775282 (Version 1)
Quarter: 2016Q3

REPORT INFORMATION
  Report Type: Spontaneous
  Country: US (occurrence: US)
  Receive Date: 20160922
  Receipt Date: 20160922
  Transmission Date: 20161109
  Serious: Yes (Hospitalization, Disabling)
  Sender: FDA-Public Use
  Company Number: None

PATIENT
  Age: 51 Year
  Sex: Female
  Weight: 63 kg

DRUGS (3)
  1. CALTRATE [Concomitant]
     Active Substance: CALCIUM CARBONATE
  2. ALENDRONATE [Suspect]
     Active Substance: ALENDRONATE SODIUM
     Indication: OSTEOPOROSIS
     Dosage: OTHER STRENGTH:;OTHER DOSE:;OTHER FREQUENCY:WEEKLY;OTHER ROUTE:
     Route: 048
     Dates: start: 20101015, end: 20160606
  3. NIVOMO [Concomitant]

REACTIONS (5)
  - Heart rate irregular [None]
  - Heart rate increased [None]
  - Blood pressure increased [None]
  - Abdominal pain upper [None]
  - Osteoarthritis [None]

NARRATIVE: CASE EVENT DATE: 20151016
